FAERS Safety Report 7441756-3 (Version None)
Quarter: 2011Q2

REPORT INFORMATION
  Report Type: 
  Country: None (occurrence: None)
  Receive Date: 20110428
  Receipt Date: 20110423
  Transmission Date: 20111010
  Serious: Yes (Other)
  Sender: FDA-Public Use
  Company Number: AU-BRISTOL-MYERS SQUIBB COMPANY-15682131

PATIENT
  Age: 50 Year
  Sex: Female

DRUGS (7)
  1. WARFARIN SODIUM [Suspect]
  2. FLECAINIDE [Suspect]
  3. SERTRALINE [Suspect]
  4. FUROSEMIDE [Suspect]
  5. CALCIUM [Suspect]
  6. POTASSIUM CHLORIDE [Suspect]
  7. ESTRIOL SUCCINATE [Suspect]

REACTIONS (1)
  - HAEMORRHAGE [None]
